FAERS Safety Report 14317821 (Version 1)
Quarter: 2017Q4

REPORT INFORMATION
  Report Type: Report from Study
  Country: PH (occurrence: PH)
  Receive Date: 20171222
  Receipt Date: 20171222
  Transmission Date: 20180321
  Serious: Yes (Hospitalization)
  Sender: FDA-Public Use
  Company Number: PH-ASTELLAS-2009002631

PATIENT
  Age: 67 Year
  Sex: Female
  Weight: 53 kg

DRUGS (8)
  1. ERLOTINIB [Suspect]
     Active Substance: ERLOTINIB
     Route: 048
     Dates: start: 20091103
  2. GEMCITABINE [Suspect]
     Active Substance: GEMCITABINE\GEMCITABINE HYDROCHLORIDE
     Route: 042
     Dates: start: 20091103
  3. ASCORBIC ACID. [Concomitant]
     Active Substance: ASCORBIC ACID
     Indication: PRODUCT USED FOR UNKNOWN INDICATION
     Dosage: UNK, UNKNOWN FREQ.
     Route: 065
  4. GEMCITABINE [Suspect]
     Active Substance: GEMCITABINE\GEMCITABINE HYDROCHLORIDE
     Indication: NON-SMALL CELL LUNG CANCER
     Route: 042
     Dates: start: 20090519, end: 20091029
  5. ERLOTINIB [Suspect]
     Active Substance: ERLOTINIB
     Indication: NON-SMALL CELL LUNG CANCER
     Route: 048
     Dates: start: 20090602, end: 20091029
  6. CARBOPLATIN. [Suspect]
     Active Substance: CARBOPLATIN
     Dosage: UNK UNK, UNKNOWN FREQ.
     Route: 042
     Dates: start: 20090829
  7. CARBOPLATIN. [Suspect]
     Active Substance: CARBOPLATIN
     Indication: NON-SMALL CELL LUNG CANCER
     Route: 042
     Dates: start: 20090519, end: 20090821
  8. FERROUS SULFATE. [Concomitant]
     Active Substance: FERROUS SULFATE
     Indication: PRODUCT USED FOR UNKNOWN INDICATION
     Dosage: UNK, UNKNOWN FREQ.
     Route: 065

REACTIONS (1)
  - Anaemia [Recovered/Resolved]

NARRATIVE: CASE EVENT DATE: 20090814
